FAERS Safety Report 12152902 (Version 2)
Quarter: 2016Q2

REPORT INFORMATION
  Report Type: Report from Study
  Country: US (occurrence: US)
  Receive Date: 20160305
  Receipt Date: 20160511
  Transmission Date: 20160815
  Serious: No
  Sender: FDA-Public Use
  Company Number: PHEH2016US004710

PATIENT
  Sex: Female

DRUGS (1)
  1. SANDOSTATIN LAR DEPOT [Suspect]
     Active Substance: OCTREOTIDE ACETATE
     Indication: PRODUCT USED FOR UNKNOWN INDICATION
     Dosage: 20 MG/KG, QMO
     Route: 042
     Dates: start: 20150925, end: 20160223

REACTIONS (4)
  - Syringe issue [Unknown]
  - Incorrect route of drug administration [Unknown]
  - Underdose [Unknown]
  - Product quality issue [Unknown]
